FAERS Safety Report 6751409-2 (Version None)
Quarter: 2010Q2

REPORT INFORMATION
  Report Type: 
  Country: None (occurrence: None)
  Receive Date: 20100602
  Receipt Date: 20090803
  Transmission Date: 20101027
  Serious: Yes (Death)
  Sender: FDA-Public Use
  Company Number: IT-ROCHE-647376

PATIENT

DRUGS (5)
  1. GANCICLOVIR SODIUM [Suspect]
     Route: 042
  2. MYCOPHENOLATE MOFETIL [Suspect]
     Dosage: MAINTENANCE THERAPY.
     Route: 065
  3. RATG [Suspect]
     Route: 065
  4. CYCLOSPORINE [Suspect]
     Dosage: MAINTENANCE THERAPY.
     Route: 065
  5. PREDNISONE TAB [Suspect]
     Route: 065

REACTIONS (1)
  - DEATH [None]
